FAERS Safety Report 23500573 (Version 17)
Quarter: 2025Q1

REPORT INFORMATION
  Report Type: Spontaneous
  Country: US (occurrence: US)
  Receive Date: 20240208
  Receipt Date: 20250203
  Transmission Date: 20250409
  Serious: No
  Sender: PFIZER
  Company Number: US-PFIZER INC-202400022812

PATIENT
  Age: 15 Year
  Sex: Male
  Weight: 65.77 kg

DRUGS (2)
  1. GENOTROPIN [Suspect]
     Active Substance: SOMATROPIN
     Dosage: 1.6 MG, DAILY
  2. EPIPEN [Suspect]
     Active Substance: EPINEPHRINE

REACTIONS (5)
  - Drug dose omission by device [Unknown]
  - Device use issue [Unknown]
  - Drug administered in wrong device [Unknown]
  - Device failure [Unknown]
  - Device breakage [Unknown]
